FAERS Safety Report 8163801-2 (Version None)
Quarter: 2012Q1

REPORT INFORMATION
  Report Type: 
  Country: None (occurrence: None)
  Receive Date: 20120224
  Receipt Date: 20120221
  Transmission Date: 20120608
  Serious: Yes (Hospitalization)
  Sender: FDA-Public Use
  Company Number: US-TEVA-304017USA

PATIENT
  Sex: Female
  Weight: 49.032 kg

DRUGS (1)
  1. PARAGARD T 380A [Suspect]
     Indication: CONTRACEPTION
     Route: 015
     Dates: start: 20110831, end: 20110921

REACTIONS (5)
  - CHILLS [None]
  - PYREXIA [None]
  - STAPHYLOCOCCAL INFECTION [None]
  - BLISTER [None]
  - PELVIC PAIN [None]
